FAERS Safety Report 24057378 (Version 1)
Quarter: 2024Q3

REPORT INFORMATION
  Report Type: Spontaneous
  Country: ES (occurrence: ES)
  Receive Date: 20240706
  Receipt Date: 20240706
  Transmission Date: 20241016
  Serious: Yes (Other)
  Sender: MACLEODS
  Company Number: ES-MACLEODS PHARMA-MAC2024047989

PATIENT

DRUGS (1)
  1. NIACIN [Suspect]
     Active Substance: NIACIN
     Indication: Vitamin supplementation
     Dosage: AVERAGE DOSE OF 500MG DAILY/D, PILL EVERY 12H, MODERATE DOSE BETWEEN 500MG AND 1 G PER DAY FOR 7 YR
     Route: 065

REACTIONS (2)
  - Blindness transient [Recovered/Resolved]
  - Cystoid macular oedema [Recovered/Resolved]
